FAERS Safety Report 8835702 (Version 1)
Quarter: 2012Q4

REPORT INFORMATION
  Report Type: 
  Country: US (occurrence: US)
  Receive Date: 20121011
  Receipt Date: 20121011
  Transmission Date: 20130627
  Serious: Yes (Other)
  Sender: FDA-Public Use
  Company Number: US-ASTRAZENECA-2012SE71695

PATIENT
  Age: 78 Year
  Sex: Female

DRUGS (2)
  1. ARIMIDEX [Suspect]
     Route: 048
     Dates: start: 2009
  2. TAMOXIFEN CITRATE [Suspect]
     Route: 048

REACTIONS (2)
  - Neoplasm malignant [Unknown]
  - Cerebrovascular accident [Unknown]
